FAERS Safety Report 7137337-1 (Version None)
Quarter: 2010Q4

REPORT INFORMATION
  Report Type: 
  Country: None (occurrence: None)
  Receive Date: 20101206
  Receipt Date: 20081007
  Transmission Date: 20110411
  Serious: Yes (Death)
  Sender: FDA-Public Use
  Company Number: US-ACTELION-A-US2008-19071

PATIENT

DRUGS (3)
  1. TRACLEER [Suspect]
     Indication: PULMONARY HYPERTENSION
     Route: 048
     Dates: start: 20071212
  2. VENTAVIS [Suspect]
     Indication: PULMONARY HYPERTENSION
     Route: 055
     Dates: start: 20080601, end: 20080920
  3. REVATIO [Concomitant]

REACTIONS (3)
  - DEATH [None]
  - DEPRESSION [None]
  - FATIGUE [None]
